FAERS Safety Report 5662139-2 (Version None)
Quarter: 2008Q1

REPORT INFORMATION
  Report Type: 
  Country: None (occurrence: None)
  Receive Date: 20080221
  Receipt Date: 20070713
  Transmission Date: 20080703
  Serious: Yes (Other)
  Sender: FDA-Public Use
  Company Number: PHEH2007US09994

PATIENT
  Sex: Male

DRUGS (1)
  1. DIOVAN [Suspect]
     Indication: HYPERTENSION
     Dosage: 160MG, ORAL : 320MG, ORAL : 320 MG, 1/2 TAB QD
     Route: 048

REACTIONS (2)
  - DRUG INEFFECTIVE [None]
  - HYPOTENSION [None]
